FAERS Safety Report 11146056 (Version 1)
Quarter: 2015Q2

REPORT INFORMATION
  Report Type: Spontaneous
  Country: CN (occurrence: None)
  Receive Date: 20150526
  Receipt Date: 20150526
  Transmission Date: 20150821
  Serious: Yes (Hospitalization)
  Sender: FDA-Public Use
  Company Number: FK201502362

PATIENT
  Age: 68 Year
  Sex: Male

DRUGS (3)
  1. OXALIPLATIN. [Suspect]
     Active Substance: OXALIPLATIN
     Indication: GASTRIC CANCER
     Dates: start: 200703, end: 200708
  2. CAPECITABINE (MANUFACTURER UNKNOWN) (CAPECITABINE) (CAPECITABINE) [Suspect]
     Active Substance: CAPECITABINE
     Indication: GASTRIC CANCER
     Route: 048
     Dates: start: 200703, end: 200708
  3. RECOMBINANT HUMAN GRANULOCYTE-COLONY STIMULATING FACTOR (GRANULOCYTE COLONY STIMULATING FACTOR) [Concomitant]

REACTIONS (2)
  - Acute myeloid leukaemia [None]
  - Leukaemia [None]

NARRATIVE: CASE EVENT DATE: 201104
